FAERS Safety Report 8966164 (Version 1)
Quarter: 2012Q4

REPORT INFORMATION
  Report Type: 
  Country: JP (occurrence: JP)
  Receive Date: 20121217
  Receipt Date: 20121217
  Transmission Date: 20130627
  Serious: Yes (Hospitalization)
  Sender: FDA-Public Use
  Company Number: JP-BAYER-2012-128175

PATIENT
  Age: 50 Year
  Sex: Male

DRUGS (1)
  1. NEXAVAR [Suspect]
     Indication: CARCINOMA HEPATOCELLULAR
     Route: 048

REACTIONS (4)
  - Wound dehiscence [None]
  - Abdominal wall haematoma [None]
  - Pyrexia [None]
  - Abdominal pain [None]
